FAERS Safety Report 20937640 (Version 3)
Quarter: 2022Q2

REPORT INFORMATION
  Report Type: Report from Study
  Country: PH (occurrence: None)
  Receive Date: 20220609
  Receipt Date: 20220614
  Transmission Date: 20220720
  Serious: Yes (Death, Hospitalization)
  Sender: FDA-Public Use
  Company Number: PH-Eisai Medical Research-EC-2022-116646

PATIENT
  Age: 46 Year
  Sex: Female

DRUGS (1)
  1. HALAVEN [Suspect]
     Active Substance: ERIBULIN MESYLATE
     Indication: Breast cancer metastatic
     Route: 042
     Dates: start: 20220413, end: 20220413

REACTIONS (5)
  - Vomiting [Not Recovered/Not Resolved]
  - Asthenia [Not Recovered/Not Resolved]
  - Stomatitis [Not Recovered/Not Resolved]
  - Pneumonia [Fatal]
  - Septic shock [Fatal]

NARRATIVE: CASE EVENT DATE: 20220401
